FAERS Safety Report 16585174 (Version 1)
Quarter: 2019Q3

REPORT INFORMATION
  Report Type: Spontaneous
  Country: FR (occurrence: FR)
  Receive Date: 20190717
  Receipt Date: 20190717
  Transmission Date: 20191004
  Serious: Yes (Death)
  Sender: FDA-Public Use
  Company Number: FR-MYLANLABS-2019M1066989

PATIENT
  Age: 76 Year
  Sex: Male
  Weight: 95 kg

DRUGS (12)
  1. FAMPYRA [Suspect]
     Active Substance: DALFAMPRIDINE
     Indication: MULTIPLE SCLEROSIS
     Dosage: 2 DOSAGE FORM, QD
     Route: 048
     Dates: start: 2013, end: 20190116
  2. ATENOLOL. [Suspect]
     Active Substance: ATENOLOL
     Indication: ATRIAL FIBRILLATION
     Dosage: 50 MILLIGRAM, QD
     Route: 048
     Dates: start: 2006, end: 20190116
  3. ATEPADENE /00090104/ [Suspect]
     Active Substance: ADENOSINE TRIPHOSPHATE DISODIUM
     Indication: BACK PAIN
     Dosage: 3 DOSAGE FORM, QD
     Route: 048
     Dates: end: 20190116
  4. PREVISCAN                          /00789001/ [Suspect]
     Active Substance: FLUINDIONE
     Indication: ATRIAL FIBRILLATION
     Dosage: 1.25 DOSAGE FORM, QD
     Route: 048
     Dates: start: 2006, end: 20190116
  5. CELLCEPT [Suspect]
     Active Substance: MYCOPHENOLATE MOFETIL\MYCOPHENOLATE MOFETIL HYDROCHLORIDE
     Indication: MULTIPLE SCLEROSIS
     Dosage: 2 DOSAGE FORM, QD
     Route: 048
     Dates: start: 2010, end: 20190116
  6. DOLIPRANE [Suspect]
     Active Substance: ACETAMINOPHEN
     Indication: BACK PAIN
     Dosage: 6 DOSAGE FORM, QD
     Route: 048
     Dates: end: 20190116
  7. DEDROGYL [Suspect]
     Active Substance: CALCIFEDIOL
     Indication: PROPHYLAXIS
     Dosage: 5 GTT DROPS, QD
     Route: 048
     Dates: start: 2014, end: 20190116
  8. UVEDOSE [Suspect]
     Active Substance: CHOLECALCIFEROL
     Indication: VITAMIN D DEFICIENCY
     Dosage: 1 DOSAGE FORM, MONTHLY
     Route: 048
     Dates: end: 20190116
  9. LIORESAL [Suspect]
     Active Substance: BACLOFEN
     Indication: MULTIPLE SCLEROSIS
     Dosage: 60 MILLIGRAM, QD
     Route: 048
     Dates: end: 20190116
  10. OMIX [Suspect]
     Active Substance: TAMSULOSIN HYDROCHLORIDE
     Indication: PRODUCT USED FOR UNKNOWN INDICATION
     Dosage: 1 DOSAGE FORM, QD
     Route: 048
     Dates: start: 2009, end: 20190116
  11. DEROXAT [Suspect]
     Active Substance: PAROXETINE HYDROCHLORIDE
     Indication: DEPRESSION
     Dosage: 1 DOSAGE FORM, QD
     Route: 048
     Dates: start: 2009, end: 20190116
  12. FLECTOR                            /00372302/ [Suspect]
     Active Substance: DICLOFENAC SODIUM
     Indication: BACK PAIN
     Dosage: UNK
     Route: 003
     Dates: end: 20190116

REACTIONS (3)
  - Brain herniation [Fatal]
  - Intracranial pressure increased [Fatal]
  - Subdural haematoma [Fatal]

NARRATIVE: CASE EVENT DATE: 20190116
